FAERS Safety Report 16258243 (Version 2)
Quarter: 2019Q2

REPORT INFORMATION
  Report Type: Spontaneous
  Country: CA (occurrence: CA)
  Receive Date: 20190430
  Receipt Date: 20190606
  Transmission Date: 20190711
  Serious: Yes (Hospitalization, Other)
  Sender: FDA-Public Use
  Company Number: CA-PFIZER INC-2019181397

PATIENT
  Age: 49 Year
  Sex: Male
  Weight: 74.38 kg

DRUGS (2)
  1. ADVIL LIQUI-GELS [Suspect]
     Active Substance: IBUPROFEN
     Indication: NEOPLASM MALIGNANT
  2. ADVIL LIQUI-GELS [Suspect]
     Active Substance: IBUPROFEN
     Indication: SEIZURE
     Dosage: 2 X 200 MG
     Dates: start: 2010

REACTIONS (3)
  - Calculus bladder [Not Recovered/Not Resolved]
  - Product use issue [Unknown]
  - Nephrolithiasis [Not Recovered/Not Resolved]

NARRATIVE: CASE EVENT DATE: 2019
